FAERS Safety Report 12584229 (Version 2)
Quarter: 2016Q3

REPORT INFORMATION
  Report Type: Spontaneous
  Country: US (occurrence: US)
  Receive Date: 20160722
  Receipt Date: 20160906
  Transmission Date: 20161109
  Serious: No
  Sender: FDA-Public Use
  Company Number: US-GLAXOSMITHKLINE-US2016104225

PATIENT
  Age: 55 Year
  Sex: Male

DRUGS (1)
  1. TRANSDERM SCOP [Suspect]
     Active Substance: SCOPOLAMINE
     Indication: MOTION SICKNESS
     Dosage: UNK
     Dates: start: 20160714, end: 20160715

REACTIONS (5)
  - Headache [Unknown]
  - Drug ineffective [Unknown]
  - Dry mouth [Unknown]
  - Product quality issue [Unknown]
  - Vision blurred [Unknown]

NARRATIVE: CASE EVENT DATE: 20160715
